FAERS Safety Report 4456111-8 (Version None)
Quarter: 2004Q3

REPORT INFORMATION
  Report Type: 
  Country: None (occurrence: None)
  Receive Date: 20040920
  Receipt Date: 20040907
  Transmission Date: 20050211
  Serious: Yes (Other)
  Sender: FDA-Public Use
  Company Number: FR-2004-031662

PATIENT
  Age: 19 Year
  Sex: Female
  Weight: 58 kg

DRUGS (1)
  1. JASMINE (DROSPIRENONE, ETHINYLESTRADIOL) FILM TABLET [Suspect]

REACTIONS (4)
  - HYPERALDOSTERONISM [None]
  - HYPERKALAEMIA [None]
  - HYPERTRIGLYCERIDAEMIA [None]
  - WEIGHT INCREASED [None]
